FAERS Safety Report 9054446 (Version 1)
Quarter: 2013Q1

REPORT INFORMATION
  Report Type: Spontaneous
  Country: US (occurrence: US)
  Receive Date: 20130208
  Receipt Date: 20130208
  Transmission Date: 20140127
  Serious: No
  Sender: FDA-Public Use
  Company Number: US-GLAXOSMITHKLINE-A0971524A

PATIENT
  Sex: Male
  Weight: 61.4 kg

DRUGS (6)
  1. PAXIL [Suspect]
     Indication: DEPRESSION
  2. ANDROGEL [Suspect]
     Indication: BLOOD TESTOSTERONE DECREASED
     Route: 061
     Dates: start: 201006
  3. KLONOPIN [Suspect]
  4. SERETIDE [Concomitant]
  5. SODIUM RABEPRAZOLE [Concomitant]
  6. ZEGERID [Concomitant]

REACTIONS (7)
  - Insomnia [Recovered/Resolved]
  - Anger [Recovered/Resolved]
  - Blood testosterone decreased [Recovered/Resolved]
  - Blood testosterone increased [Recovered/Resolved]
  - Asthenia [Not Recovered/Not Resolved]
  - Dystonia [Not Recovered/Not Resolved]
  - Muscular weakness [Not Recovered/Not Resolved]
